FAERS Safety Report 7702300-6 (Version None)
Quarter: 2011Q3

REPORT INFORMATION
  Report Type: 
  Country: None (occurrence: None)
  Receive Date: 20110822
  Receipt Date: 20110811
  Transmission Date: 20111222
  Serious: Yes (Life-Threatening, Other)
  Sender: FDA-Public Use
  Company Number: US-ASTRAZENECA-2010SE53115

PATIENT
  Age: 51 Year
  Sex: Female

DRUGS (1)
  1. SEROQUEL [Suspect]
     Indication: BIPOLAR DISORDER
     Route: 048
     Dates: start: 20050101

REACTIONS (5)
  - SUICIDAL BEHAVIOUR [None]
  - DEPRESSION [None]
  - WEIGHT DECREASED [None]
  - DRUG DOSE OMISSION [None]
  - BODY MASS INDEX DECREASED [None]
